FAERS Safety Report 7673737-9 (Version None)
Quarter: 2011Q3

REPORT INFORMATION
  Report Type: 
  Country: None (occurrence: None)
  Receive Date: 20110808
  Receipt Date: 20110722
  Transmission Date: 20111222
  Serious: Yes (Other)
  Sender: FDA-Public Use
  Company Number: CIO11013485

PATIENT
  Age: 80 Year
  Sex: Female

DRUGS (1)
  1. METAMUCIL SUGAR FREE SMOOTH TEXTURE, PINK LEMONADE FLAVOR(PSYLLIUM HYD [Suspect]
     Dosage: 1 TSP, 1 ONLY, ORAL
     Route: 048
     Dates: start: 20110719, end: 20110719

REACTIONS (5)
  - DYSPNOEA [None]
  - DIARRHOEA [None]
  - ASTHENIA [None]
  - CONVULSION [None]
  - VOMITING [None]
